FAERS Safety Report 21967242 (Version 1)
Quarter: 2023Q1

REPORT INFORMATION
  Report Type: Report from Study
  Country: US (occurrence: US)
  Receive Date: 20230208
  Receipt Date: 20230208
  Transmission Date: 20230417
  Serious: Yes (Hospitalization)
  Sender: FDA-Public Use
  Company Number: US-EXELIXIS-CABO-23060493

PATIENT
  Sex: Female
  Weight: 68.481 kg

DRUGS (7)
  1. CABOMETYX [Suspect]
     Active Substance: CABOZANTINIB S-MALATE
     Indication: Renal cancer
     Dosage: 40 MG
     Route: 048
  2. CABOMETYX [Suspect]
     Active Substance: CABOZANTINIB S-MALATE
     Dosage: 20 MG, QD
     Route: 048
     Dates: start: 20230109
  3. MS CONTIN [Concomitant]
     Active Substance: MORPHINE SULFATE
  4. LASIX [Concomitant]
     Active Substance: FUROSEMIDE
  5. VASOTEC [Concomitant]
     Active Substance: ENALAPRIL MALEATE
  6. PROTONIX [Concomitant]
     Active Substance: PANTOPRAZOLE SODIUM
  7. CARDIZEM [Concomitant]
     Active Substance: DILTIAZEM HYDROCHLORIDE

REACTIONS (3)
  - Fluid retention [Unknown]
  - Blood pressure increased [Unknown]
  - Muscle spasms [Unknown]
